FAERS Safety Report 21928483 (Version 1)
Quarter: 2023Q1

REPORT INFORMATION
  Report Type: Spontaneous
  Country: US (occurrence: US)
  Receive Date: 20230130
  Receipt Date: 20230130
  Transmission Date: 20230418
  Serious: No
  Sender: FDA-Public Use
  Company Number: US-drreddys-SPO/USA/22/0158552

PATIENT
  Age: 53 Year
  Sex: Male

DRUGS (7)
  1. LENALIDOMIDE [Suspect]
     Active Substance: LENALIDOMIDE
     Indication: Plasma cell myeloma
     Dosage: EVERY DAY FOR 21 DAYS ON THEN 7 DAYS OFF
     Route: 048
     Dates: start: 20221024
  2. ASPIRIN 81 CHE 81MG [Concomitant]
     Indication: Product used for unknown indication
     Dosage: CHE
  3. BUMETANIDE TAB 1MG [Concomitant]
     Indication: Product used for unknown indication
  4. FARXIGA [Concomitant]
     Active Substance: DAPAGLIFLOZIN PROPANEDIOL
     Indication: Product used for unknown indication
  5. LISINOPRIL [Concomitant]
     Active Substance: LISINOPRIL
     Indication: Product used for unknown indication
  6. PROCHLORPERA TAB 10MG [Concomitant]
     Indication: Product used for unknown indication
  7. VITAMIN D TAB 25 MCG(1000 [Concomitant]
     Indication: Product used for unknown indication

REACTIONS (1)
  - Treatment noncompliance [Unknown]
